FAERS Safety Report 5234442-1 (Version None)
Quarter: 2007Q1

REPORT INFORMATION
  Report Type: 
  Country: None (occurrence: None)
  Receive Date: 20070209
  Receipt Date: 20070207
  Transmission Date: 20070707
  Serious: Yes (Hospitalization)
  Sender: FDA-Public Use
  Company Number: JP-GLAXOSMITHKLINE-B0301183A

PATIENT
  Age: 23 Year
  Sex: Male
  Weight: 62.5 kg

DRUGS (10)
  1. LAMIVUDINE [Suspect]
     Indication: HIV INFECTION
     Dosage: 300MG PER DAY
     Route: 048
     Dates: start: 20010730, end: 20020603
  2. STAVUDINE [Suspect]
     Indication: HIV INFECTION
     Dosage: 80MG PER DAY
     Route: 048
     Dates: start: 20010730, end: 20020603
  3. NELFINAVIR [Suspect]
     Indication: HIV INFECTION
     Dosage: 2.5G PER DAY
     Route: 048
     Dates: start: 20010730, end: 20021005
  4. ZIDOVUDINE [Concomitant]
     Indication: HIV INFECTION
     Dosage: 400MG PER DAY
     Route: 048
     Dates: start: 20021205
  5. ORCIPRENALINE [Concomitant]
     Indication: ATRIOVENTRICULAR BLOCK
     Dates: start: 20010717, end: 20021203
  6. COTRIM [Concomitant]
     Indication: INFECTION PROPHYLAXIS
     Route: 048
     Dates: start: 20020401
  7. ANTIHEMOPHILIAC FACTOR HUMATE P [Concomitant]
     Indication: FACTOR VIII DEFICIENCY
  8. EFAVIRENZ [Concomitant]
     Indication: HIV INFECTION
     Dosage: 600MG PER DAY
     Route: 048
     Dates: start: 20021205
  9. COMBIVIR [Concomitant]
     Indication: HIV INFECTION
     Route: 048
     Dates: start: 20020604, end: 20021005
  10. AZITHROMYCIN [Concomitant]
     Indication: MYCOBACTERIUM AVIUM COMPLEX INFECTION
     Dates: start: 20020401

REACTIONS (16)
  - ABNORMAL DREAMS [None]
  - ALANINE AMINOTRANSFERASE INCREASED [None]
  - ASPARTATE AMINOTRANSFERASE INCREASED [None]
  - ATRIOVENTRICULAR BLOCK [None]
  - BRADYCARDIA [None]
  - CHEST DISCOMFORT [None]
  - DIZZINESS [None]
  - DUODENAL ULCER [None]
  - GAMMA-GLUTAMYLTRANSFERASE INCREASED [None]
  - HEPATIC FUNCTION ABNORMAL [None]
  - HYPERLACTACIDAEMIA [None]
  - HYPOAESTHESIA [None]
  - NAUSEA [None]
  - PALPITATIONS [None]
  - STOMACH DISCOMFORT [None]
  - TACHYCARDIA [None]
